FAERS Safety Report 8263149-1 (Version None)
Quarter: 2012Q2

REPORT INFORMATION
  Report Type: 
  Country: None (occurrence: None)
  Receive Date: 20120405
  Receipt Date: 20120329
  Transmission Date: 20120825
  Serious: Yes (Other)
  Sender: FDA-Public Use
  Company Number: DE-PFIZER INC-2012082671

PATIENT
  Sex: Male

DRUGS (1)
  1. PREGABALIN [Suspect]

REACTIONS (5)
  - DELUSION [None]
  - ANXIETY [None]
  - THINKING ABNORMAL [None]
  - INTENTIONAL DRUG MISUSE [None]
  - AGITATION [None]
